FAERS Safety Report 15943456 (Version 5)
Quarter: 2021Q4

REPORT INFORMATION
  Report Type: Report from Study
  Country: GR (occurrence: GR)
  Receive Date: 20190210
  Receipt Date: 20211231
  Transmission Date: 20220303
  Serious: Yes (Hospitalization, Other)
  Sender: FDA-Public Use
  Company Number: PHHY2019GR027393

PATIENT
  Age: 52 Year
  Sex: Female

DRUGS (6)
  1. COSENTYX [Suspect]
     Active Substance: SECUKINUMAB
     Indication: Ankylosing spondylitis
     Dosage: 150 MG, UNK
     Route: 058
     Dates: start: 20161006, end: 20161102
  2. COSENTYX [Suspect]
     Active Substance: SECUKINUMAB
     Dosage: 150 MG, UNK
     Route: 065
     Dates: start: 20161103, end: 20190111
  3. COSENTYX [Suspect]
     Active Substance: SECUKINUMAB
     Dosage: 150 MG, UNK
     Route: 065
     Dates: start: 20190117, end: 20190214
  4. COSENTYX [Suspect]
     Active Substance: SECUKINUMAB
     Dosage: 150 MG, UNK
     Route: 065
     Dates: start: 20190411, end: 20200114
  5. COSENTYX [Suspect]
     Active Substance: SECUKINUMAB
     Dosage: 300 MG(300MG/2ML)
     Route: 065
     Dates: start: 20200115, end: 20200515
  6. COSENTYX [Suspect]
     Active Substance: SECUKINUMAB
     Dosage: 300 MG(300MG/2ML)
     Route: 065
     Dates: start: 20200708

REACTIONS (13)
  - Migraine [Recovered/Resolved]
  - Headache [Recovered/Resolved]
  - Nausea [Recovered/Resolved]
  - Hypoaesthesia [Recovered/Resolved]
  - Photophobia [Recovered/Resolved]
  - Type 2 diabetes mellitus [Recovering/Resolving]
  - Psoriatic arthropathy [Recovered/Resolved]
  - Hypertension [Recovering/Resolving]
  - Depression [Recovering/Resolving]
  - Migraine [Recovering/Resolving]
  - Fibrocystic breast disease [Recovering/Resolving]
  - Asthma [Recovering/Resolving]
  - Breast discharge [Recovered/Resolved]

NARRATIVE: CASE EVENT DATE: 20180831
